FAERS Safety Report 13504729 (Version 2)
Quarter: 2017Q3

REPORT INFORMATION
  Report Type: Spontaneous
  Country: US (occurrence: US)
  Receive Date: 20170502
  Receipt Date: 20170724
  Transmission Date: 20171127
  Serious: No
  Sender: FDA-Public Use
  Company Number: US-IMPAX LABORATORIES, INC-2017-IPXL-00204

PATIENT
  Age: 67 Year
  Sex: Female
  Weight: 59 kg

DRUGS (3)
  1. RYTARY [Suspect]
     Active Substance: CARBIDOPA\LEVODOPA
     Dosage: 1 CAP OF 23.75/95 MG AND 2 CAP OF 36.25/145 MG AT 8AM, 11 AM, 2 PM, 5PM, AND 1 CAP OF 23.75/95 MG AN
     Route: 065
     Dates: start: 2017, end: 2017
  2. RYTARY [Suspect]
     Active Substance: CARBIDOPA\LEVODOPA
     Dosage: 36.25/145 MG 3 CAP AT 8 AM; 36.25/145 MG 2 CAP AND 23.75/95 MG 1 CAP AT 11 AM; 36.25/145 MG 2 CAP AN
     Route: 065
     Dates: start: 2017
  3. RYTARY [Suspect]
     Active Substance: CARBIDOPA\LEVODOPA
     Indication: PARKINSON^S DISEASE
     Dosage: 1 CAP OF 23.75/95 MG AND 2 CAP OF 36.25/145 MG AT 8AM, 2 CAP OF 36.25/145 MG AT 11AM, 2PM, 5PM, AND
     Route: 065
     Dates: start: 20170206, end: 2017

REACTIONS (1)
  - Therapeutic response shortened [Not Recovered/Not Resolved]

NARRATIVE: CASE EVENT DATE: 2017
